FAERS Safety Report 9443350 (Version 2)
Quarter: 2013Q3

REPORT INFORMATION
  Report Type: Spontaneous
  Country: MX (occurrence: MX)
  Receive Date: 20130806
  Receipt Date: 20130819
  Transmission Date: 20140515
  Serious: Yes (Other)
  Sender: FDA-Public Use
  Company Number: MX-GLAXOSMITHKLINE-A1036502A

PATIENT
  Age: 49 Year
  Sex: Male

DRUGS (3)
  1. ZOVIRAX [Suspect]
     Indication: HERPES VIRUS INFECTION
     Route: 065
  2. ASTEMIZOLE [Suspect]
     Indication: DERMATITIS
     Route: 065
  3. METAMIZOLE [Suspect]
     Indication: PAIN
     Route: 065

REACTIONS (1)
  - Loss of consciousness [Recovered/Resolved]
